FAERS Safety Report 22626848 (Version 1)
Quarter: 2023Q2

REPORT INFORMATION
  Report Type: Spontaneous
  Country: CN (occurrence: CN)
  Receive Date: 20230622
  Receipt Date: 20230622
  Transmission Date: 20230722
  Serious: Yes (Other)
  Sender: FDA-Public Use
  Company Number: CN-JNJFOC-20230636055

PATIENT
  Age: 29 Year
  Sex: Male
  Weight: 57.5 kg

DRUGS (5)
  1. SPORANOX [Interacting]
     Active Substance: ITRACONAZOLE
     Indication: Onychomycosis
     Dosage: IN THE SECOND WEEK OF JUNE 2023
     Route: 048
     Dates: start: 202306
  2. SPORANOX [Interacting]
     Active Substance: ITRACONAZOLE
     Route: 048
     Dates: start: 20230613
  3. SPORANOX [Interacting]
     Active Substance: ITRACONAZOLE
     Route: 048
     Dates: start: 20230614
  4. AMLODIPINE [Suspect]
     Active Substance: AMLODIPINE BESYLATE
     Indication: Onychomycosis
     Route: 065
     Dates: start: 202306
  5. METOPROLOL TARTRATE [Suspect]
     Active Substance: METOPROLOL TARTRATE
     Indication: Onychomycosis
     Route: 065
     Dates: start: 202306

REACTIONS (4)
  - Hypoglycaemia [Recovering/Resolving]
  - Pyrexia [Unknown]
  - Heart rate increased [Unknown]
  - Food interaction [Unknown]

NARRATIVE: CASE EVENT DATE: 20230614
